FAERS Safety Report 10426925 (Version 1)
Quarter: 2014Q3

REPORT INFORMATION
  Report Type: Spontaneous
  Country: US (occurrence: None)
  Receive Date: 20140902
  Receipt Date: 20140902
  Transmission Date: 20150326
  Serious: Yes (Other)
  Sender: FDA-Public Use
  Company Number: None

PATIENT
  Age: 56 Year
  Sex: Male
  Weight: 117.94 kg

DRUGS (22)
  1. MIRALAX [Concomitant]
     Active Substance: POLYETHYLENE GLYCOL 3350
  2. OXYCODONE [Concomitant]
     Active Substance: OXYCODONE
  3. DEXAMETHASONE. [Concomitant]
     Active Substance: DEXAMETHASONE
  4. XGEVA [Suspect]
     Active Substance: DENOSUMAB
     Indication: SMALL CELL LUNG CANCER
     Dosage: 120MG EVERY 4 WEEKS INTRAMUSCULAR
     Route: 030
     Dates: start: 20140722
  5. ONDANSETRON [Concomitant]
     Active Substance: ONDANSETRON
  6. COMPAZINE [Concomitant]
     Active Substance: PROCHLORPERAZINE MALEATE
  7. LYRICA [Concomitant]
     Active Substance: PREGABALIN
  8. COREG [Concomitant]
     Active Substance: CARVEDILOL
  9. LASIX [Concomitant]
     Active Substance: FUROSEMIDE
  10. ZOFRAN [Concomitant]
     Active Substance: ONDANSETRON HYDROCHLORIDE
  11. NEULASTA [Concomitant]
     Active Substance: PEGFILGRASTIM
  12. FLOMAX [Concomitant]
     Active Substance: TAMSULOSIN HYDROCHLORIDE
  13. EMEND [Concomitant]
     Active Substance: APREPITANT
  14. INSULIN [Concomitant]
     Active Substance: INSULIN NOS
  15. HYDRALAZINE [Concomitant]
     Active Substance: HYDRALAZINE HYDROCHLORIDE
  16. NEXIUM [Concomitant]
     Active Substance: ESOMEPRAZOLE MAGNESIUM
  17. ETOPOSIDE. [Concomitant]
     Active Substance: ETOPOSIDE
  18. CALCITRIOL. [Concomitant]
     Active Substance: CALCITRIOL
  19. ATIVAN [Concomitant]
     Active Substance: LORAZEPAM
  20. XGEVA [Suspect]
     Active Substance: DENOSUMAB
     Indication: METASTASES TO BONE
     Dosage: 120MG EVERY 4 WEEKS INTRAMUSCULAR
     Route: 030
     Dates: start: 20140722
  21. CARBOPLATIN. [Concomitant]
     Active Substance: CARBOPLATIN
  22. CALCIUM WITH VITAMIN D [Concomitant]
     Active Substance: CALCIUM\VITAMIN D

REACTIONS (2)
  - Renal failure [None]
  - Hypocalcaemia [None]

NARRATIVE: CASE EVENT DATE: 20140729
